FAERS Safety Report 8184494-4 (Version None)
Quarter: 2012Q1

REPORT INFORMATION
  Report Type: 
  Country: None (occurrence: None)
  Receive Date: 20120305
  Receipt Date: 20120221
  Transmission Date: 20120608
  Serious: Yes (Other)
  Sender: FDA-Public Use
  Company Number: AU-ROCHE-1042404

PATIENT
  Sex: Female

DRUGS (8)
  1. CYMBALTA [Concomitant]
  2. FOLIC ACID [Concomitant]
  3. ARAVA [Concomitant]
  4. LEVOTHYROXINE SODIUM [Concomitant]
  5. HYDRENE [Concomitant]
  6. ACTEMRA [Suspect]
     Indication: RHEUMATOID ARTHRITIS
     Dates: start: 20120124
  7. MERSYNDOL [Concomitant]
  8. LIPITOR [Concomitant]

REACTIONS (2)
  - VIRAL INFECTION [None]
  - ADVERSE DRUG REACTION [None]
